FAERS Safety Report 23163548 (Version 2)
Quarter: 2023Q4

REPORT INFORMATION
  Report Type: Report from Study
  Country: IQ (occurrence: IQ)
  Receive Date: 20231109
  Receipt Date: 20231208
  Transmission Date: 20240109
  Serious: Yes (Other)
  Sender: FDA-Public Use
  Company Number: IQ-BAYER-2023A155795

PATIENT
  Age: 65 Year
  Sex: Male

DRUGS (2)
  1. EYLEA [Suspect]
     Active Substance: AFLIBERCEPT
     Indication: Diabetic eye disease
     Dosage: SECOND, INJECTION, MONTHLY, SOLUTION FOR INJECTION, 40MG/ML
     Dates: start: 202309, end: 202309
  2. EYLEA [Suspect]
     Active Substance: AFLIBERCEPT
     Dosage: UNK,SOLUTION FOR INJECTION, 40MG/ML
     Dates: start: 202310, end: 202310

REACTIONS (4)
  - Loss of consciousness [Recovered/Resolved]
  - Visual impairment [Recovered/Resolved]
  - Eye pain [Recovered/Resolved]
  - Ocular hyperaemia [Recovered/Resolved]

NARRATIVE: CASE EVENT DATE: 20231025
